FAERS Safety Report 8543665-5 (Version None)
Quarter: 2012Q3

REPORT INFORMATION
  Report Type: 
  Country: None (occurrence: None)
  Receive Date: 20120719
  Receipt Date: 20120719
  Transmission Date: 20120928
  Serious: Yes (Hospitalization, Disabling)
  Sender: FDA-Public Use
  Company Number: None

PATIENT
  Age: 19 Year
  Sex: Male
  Weight: 70.3075 kg

DRUGS (2)
  1. ABILIFY [Suspect]
     Indication: ATTENTION DEFICIT/HYPERACTIVITY DISORDER
     Dosage: \5MG 1 PER DAY PO
     Route: 048
     Dates: start: 20120430, end: 20120716
  2. ABILIFY [Suspect]
     Indication: ANTIDEPRESSANT THERAPY
     Dosage: \5MG 1 PER DAY PO
     Route: 048
     Dates: start: 20120430, end: 20120716

REACTIONS (6)
  - ANXIETY [None]
  - TRISMUS [None]
  - HYPERHIDROSIS [None]
  - DYSTONIA [None]
  - TREMOR [None]
  - FEAR [None]
